FAERS Safety Report 4435288-4 (Version None)
Quarter: 2004Q3

REPORT INFORMATION
  Report Type: 
  Country: None (occurrence: None)
  Receive Date: 20040826
  Receipt Date: 20040824
  Transmission Date: 20050211
  Serious: Yes (Hospitalization, Other)
  Sender: FDA-Public Use
  Company Number: THQ2004A00791

PATIENT

DRUGS (2)
  1. LANSOPRAZOLE [Suspect]
  2. BIPROFENID (KETOPROFEN) (TABLETS) [Suspect]
     Dosage: CONTROLLED/MODIFIED RELEASE TABLETS
     Route: 048

REACTIONS (1)
  - GASTRIC PERFORATION [None]
